FAERS Safety Report 17296515 (Version 2)
Quarter: 2020Q1

REPORT INFORMATION
  Report Type: Spontaneous
  Country: US (occurrence: US)
  Receive Date: 20200122
  Receipt Date: 20200206
  Transmission Date: 20200409
  Serious: Yes (Other)
  Sender: FDA-Public Use
  Company Number: US-ABBVIE-19K-163-3159711-00

PATIENT
  Age: 71 Year
  Sex: Female

DRUGS (3)
  1. IMBRUVICA [Suspect]
     Active Substance: IBRUTINIB
     Indication: PRODUCT USED FOR UNKNOWN INDICATION
     Dosage: 560 MG, UNK (4 CAPSULE OF 140  MG).
     Route: 048
     Dates: start: 20190724, end: 20190910
  2. IMBRUVICA [Suspect]
     Active Substance: IBRUTINIB
     Dosage: 3 CAPSULE
     Route: 048
  3. PREDNISONE. [Concomitant]
     Active Substance: PREDNISONE
     Indication: PRODUCT USED FOR UNKNOWN INDICATION
     Dates: start: 201904

REACTIONS (7)
  - Arthritis [Not Recovered/Not Resolved]
  - Rash papular [Not Recovered/Not Resolved]
  - Oedema peripheral [Recovered/Resolved]
  - Spinal stenosis [Not Recovered/Not Resolved]
  - Stomatitis [Unknown]
  - Psoriasis [Unknown]
  - Rash [Not Recovered/Not Resolved]

NARRATIVE: CASE EVENT DATE: 20190903
